FAERS Safety Report 6010008-0 (Version None)
Quarter: 2008Q4

REPORT INFORMATION
  Report Type: 
  Country: None (occurrence: None)
  Receive Date: 20081218
  Receipt Date: 20081208
  Transmission Date: 20090506
  Serious: Yes (Hospitalization)
  Sender: FDA-Public Use
  Company Number: US-PFIZER INC-2008061587

PATIENT
  Sex: Male
  Weight: 82.993 kg

DRUGS (9)
  1. BLINDED *PLACEBO [Suspect]
     Indication: OSTEOARTHRITIS
     Dosage: UNK
     Route: 048
     Dates: start: 20080228, end: 20080407
  2. CELECOXIB [Suspect]
     Indication: OSTEOARTHRITIS
     Dosage: UNK
     Route: 048
     Dates: start: 20080228, end: 20080407
  3. BLINDED IBUPROFEN [Suspect]
     Indication: OSTEOARTHRITIS
     Dosage: UNK
     Route: 048
     Dates: start: 20080228, end: 20080407
  4. BLINDED NAPROXEN [Suspect]
     Indication: OSTEOARTHRITIS
     Dosage: UNK
     Route: 048
     Dates: start: 20080228, end: 20080407
  5. SIMVASTATIN [Concomitant]
     Dosage: QHS
     Route: 048
     Dates: start: 19970101
  6. VALSARTAN [Concomitant]
     Dosage: QD
     Route: 048
     Dates: start: 20080404
  7. ASPIRIN [Concomitant]
     Dosage: QD
     Route: 048
     Dates: start: 20000101
  8. LORTAB [Concomitant]
     Dosage: 1/2 TAB,QID
     Route: 048
     Dates: start: 20080423
  9. MULTI-VITAMINS [Concomitant]
     Dosage: 1 TAB,QD
     Route: 048
     Dates: start: 20080701

REACTIONS (2)
  - ARTHROFIBROSIS [None]
  - OSTEOARTHRITIS [None]
